FAERS Safety Report 20913841 (Version 1)
Quarter: 2022Q2

REPORT INFORMATION
  Report Type: Spontaneous
  Country: RU (occurrence: RU)
  Receive Date: 20220604
  Receipt Date: 20220604
  Transmission Date: 20220720
  Serious: Yes (Other)
  Sender: FDA-Public Use
  Company Number: RU-HETERO-HET2022RU01227

PATIENT
  Age: 20 Year
  Sex: Female
  Weight: 53 kg

DRUGS (1)
  1. LAMIVUDINE AND ZIDOVUDINE [Suspect]
     Active Substance: LAMIVUDINE\ZIDOVUDINE
     Indication: HIV infection
     Dosage: 450 MG, Q.O.D. 1 INTAKE 1 TABLET
     Route: 048
     Dates: start: 20220217, end: 20220302

REACTIONS (1)
  - Dermatitis allergic [Recovering/Resolving]

NARRATIVE: CASE EVENT DATE: 20220224
